FAERS Safety Report 24350886 (Version 1)
Quarter: 2024Q3

REPORT INFORMATION
  Report Type: Spontaneous
  Country: US (occurrence: None)
  Receive Date: 20240920
  Receipt Date: 20240920
  Transmission Date: 20241017
  Serious: Yes (Disabling)
  Sender: Public
  Company Number: None

PATIENT
  Age: 31 Year
  Sex: Male
  Weight: 76.5 kg

DRUGS (1)
  1. KETOCONAZOLE [Suspect]
     Active Substance: KETOCONAZOLE
     Indication: Dandruff
     Dosage: 4 OUNCES AS NEEDED TOPICAL ?
     Route: 061
     Dates: start: 20240919, end: 20240920

REACTIONS (4)
  - Skin burning sensation [None]
  - Application site burn [None]
  - Skin exfoliation [None]
  - Pain of skin [None]

NARRATIVE: CASE EVENT DATE: 20240920
